FAERS Safety Report 4786181-9 (Version None)
Quarter: 2005Q3

REPORT INFORMATION
  Report Type: 
  Country: None (occurrence: None)
  Receive Date: 20050930
  Receipt Date: 20050917
  Transmission Date: 20060218
  Serious: Yes (Other)
  Sender: FDA-Public Use
  Company Number: 2005129075

PATIENT
  Age: 15 Year
  Sex: Male

DRUGS (1)
  1. BENADRYL [Suspect]
     Indication: SLEEP DISORDER
     Dosage: 7 ULTRATABS ONCE, ORAL
     Route: 048
     Dates: start: 20050917, end: 20050917

REACTIONS (5)
  - DISORIENTATION [None]
  - HALLUCINATION [None]
  - INTENTIONAL MISUSE [None]
  - OVERDOSE [None]
  - TREMOR [None]
